FAERS Safety Report 7705969-5 (Version None)
Quarter: 2011Q3

REPORT INFORMATION
  Report Type: 
  Country: None (occurrence: None)
  Receive Date: 20110824
  Receipt Date: 20110817
  Transmission Date: 20111222
  Serious: No
  Sender: FDA-Public Use
  Company Number: PHEH2011US01859

PATIENT
  Sex: Male
  Weight: 63.492 kg

DRUGS (9)
  1. METOPROLOL [Concomitant]
     Dosage: 25 MG, UNK
  2. COMBIVENT [Concomitant]
  3. OMNARIS [Concomitant]
  4. ASPIRIN [Concomitant]
     Dosage: 325 MG, UNK
  5. LEVOFLOXACIN [Concomitant]
     Dosage: 250 MG, UNK
  6. TASIGNA [Suspect]
     Dosage: 300 MG, BID
     Route: 048
  7. ATIVAN [Concomitant]
     Dosage: 0.5 MG, UNK
  8. LISINOPRIL [Concomitant]
     Dosage: 10 MG, UNK
  9. LEXAPRO [Concomitant]

REACTIONS (4)
  - DIZZINESS [None]
  - FATIGUE [None]
  - NAUSEA [None]
  - DIARRHOEA [None]
